FAERS Safety Report 24030805 (Version 1)
Quarter: 2024Q2

REPORT INFORMATION
  Report Type: Spontaneous
  Country: IT (occurrence: IT)
  Receive Date: 20240628
  Receipt Date: 20240628
  Transmission Date: 20240716
  Serious: Yes (Death, Hospitalization)
  Sender: FDA-Public Use
  Company Number: IT-MYLANLABS-2024M1058285

PATIENT
  Age: 80 Year
  Sex: Male

DRUGS (2)
  1. ACYCLOVIR [Suspect]
     Active Substance: ACYCLOVIR
     Indication: Herpes simplex encephalitis
     Dosage: 750 MILLIGRAM, BID
     Route: 065
  2. LENVATINIB [Concomitant]
     Active Substance: LENVATINIB
     Indication: Hepatic cancer
     Dosage: UNK
     Route: 065

REACTIONS (1)
  - Drug ineffective [Fatal]
